FAERS Safety Report 13696894 (Version 1)
Quarter: 2017Q2

REPORT INFORMATION
  Report Type: Spontaneous
  Country: US (occurrence: US)
  Receive Date: 20170627
  Receipt Date: 20170627
  Transmission Date: 20170830
  Serious: Yes (Other)
  Sender: FDA-Public Use
  Company Number: None

PATIENT
  Age: 46 Year
  Sex: Female
  Weight: 54 kg

DRUGS (7)
  1. ATIVAN [Concomitant]
     Active Substance: LORAZEPAM
  2. MG CITRATE [Concomitant]
  3. SELENIUM [Concomitant]
     Active Substance: SELENIUM
  4. TIROSINT [Suspect]
     Active Substance: LEVOTHYROXINE SODIUM
     Indication: HYPOTHYROIDISM
     Dosage: ?          OTHER STRENGTH:UGM;QUANTITY:1 CAPSULE(S);?
     Route: 048
  5. LEVOTHYROXINE COMPOUNDER [Concomitant]
  6. VITAMIN D3 [Concomitant]
     Active Substance: CHOLECALCIFEROL
  7. VITAMIN B12 [Concomitant]
     Active Substance: CYANOCOBALAMIN

REACTIONS (17)
  - Hypophagia [None]
  - Palpitations [None]
  - Inflammation [None]
  - Eye swelling [None]
  - Disorientation [None]
  - Dizziness [None]
  - Hypertension [None]
  - Visual impairment [None]
  - Flushing [None]
  - Panic attack [None]
  - Hypersensitivity [None]
  - Heart rate increased [None]
  - Myalgia [None]
  - Stomach mass [None]
  - Headache [None]
  - Tremor [None]
  - Toxicity to various agents [None]

NARRATIVE: CASE EVENT DATE: 20170627
